FAERS Safety Report 7072158-X (Version None)
Quarter: 2010Q4

REPORT INFORMATION
  Report Type: 
  Country: None (occurrence: None)
  Receive Date: 20101029
  Receipt Date: 20100122
  Transmission Date: 20110411
  Serious: No
  Sender: FDA-Public Use
  Company Number: A0834580A

PATIENT
  Age: 76 Year
  Sex: Female

DRUGS (8)
  1. ADVAIR DISKUS 100/50 [Suspect]
     Indication: CHRONIC OBSTRUCTIVE PULMONARY DISEASE
     Dosage: 1PUFF PER DAY
     Route: 055
     Dates: start: 20060901
  2. ANTIBIOTIC [Concomitant]
  3. PROTONIX [Concomitant]
  4. PREMARIN [Concomitant]
  5. TYLENOL PM [Concomitant]
  6. IBUPROFEN [Concomitant]
  7. ACETAMINOPHEN [Concomitant]
  8. VITAMINS [Concomitant]

REACTIONS (11)
  - ARTHRALGIA [None]
  - EAR DISCOMFORT [None]
  - EAR PAIN [None]
  - INSOMNIA [None]
  - MUSCULOSKELETAL STIFFNESS [None]
  - OSTEOPOROSIS [None]
  - RASH [None]
  - RASH PRURITIC [None]
  - RHINORRHOEA [None]
  - SINUSITIS [None]
  - TONGUE DISCOLOURATION [None]
